FAERS Safety Report 18237853 (Version 4)
Quarter: 2023Q1

REPORT INFORMATION
  Report Type: Spontaneous
  Country: US (occurrence: US)
  Receive Date: 20200907
  Receipt Date: 20230116
  Transmission Date: 20230418
  Serious: No
  Sender: FDA-Public Use
  Company Number: US-PFIZER INC-2018344034

PATIENT
  Age: 4 Year
  Sex: Female

DRUGS (3)
  1. SOMAVERT [Suspect]
     Active Substance: PEGVISOMANT
     Indication: Albright^s disease
     Dosage: 10 MG, DAILY
     Dates: start: 20181005
  2. SOMAVERT [Suspect]
     Active Substance: PEGVISOMANT
     Indication: Gigantism
     Dosage: 15 MG, DAILY
     Dates: start: 20181019
  3. SOMAVERT [Suspect]
     Active Substance: PEGVISOMANT
     Dosage: 10 MG, DAILY
     Route: 058
     Dates: start: 201812

REACTIONS (3)
  - Insulin-like growth factor increased [Unknown]
  - Off label use [Unknown]
  - Off label use [Unknown]
